FAERS Safety Report 14596047 (Version 1)
Quarter: 2018Q1

REPORT INFORMATION
  Report Type: Spontaneous
  Country: FR (occurrence: FR)
  Receive Date: 20180303
  Receipt Date: 20180303
  Transmission Date: 20180509
  Serious: Yes (Hospitalization)
  Sender: FDA-Public Use
  Company Number: FR-AUROBINDO-AUR-APL-2018-010807

PATIENT

DRUGS (1)
  1. AMOXICILLIN. [Suspect]
     Active Substance: AMOXICILLIN
     Indication: URINARY TRACT INFECTION
     Dosage: UNK
     Route: 042
     Dates: start: 20171109, end: 20171113

REACTIONS (3)
  - Eosinophilia [Recovering/Resolving]
  - Erythema [Recovered/Resolved]
  - Localised oedema [Recovering/Resolving]

NARRATIVE: CASE EVENT DATE: 20171112
